FAERS Safety Report 25644402 (Version 1)
Quarter: 2025Q3

REPORT INFORMATION
  Report Type: Spontaneous
  Country: CN (occurrence: CN)
  Receive Date: 20250805
  Receipt Date: 20250805
  Transmission Date: 20251021
  Serious: Yes (Life-Threatening, Hospitalization)
  Sender: BEIGENE
  Company Number: CN-BEIGENE-BGN-2025-012842

PATIENT
  Age: 73 Year
  Weight: 81 kg

DRUGS (8)
  1. TISLELIZUMAB [Suspect]
     Active Substance: TISLELIZUMAB
     Indication: Oesophageal carcinoma
  2. TISLELIZUMAB [Suspect]
     Active Substance: TISLELIZUMAB
     Route: 041
  3. TISLELIZUMAB [Suspect]
     Active Substance: TISLELIZUMAB
     Route: 041
  4. TISLELIZUMAB [Suspect]
     Active Substance: TISLELIZUMAB
  5. NEDAPLATIN [Suspect]
     Active Substance: NEDAPLATIN
     Indication: Oesophageal carcinoma
     Route: 041
  6. NEDAPLATIN [Suspect]
     Active Substance: NEDAPLATIN
  7. PACLITAXEL [Suspect]
     Active Substance: PACLITAXEL
     Indication: Oesophageal carcinoma
     Route: 041
  8. PACLITAXEL [Suspect]
     Active Substance: PACLITAXEL

REACTIONS (11)
  - Brain hypoxia [Unknown]
  - Cerebral haemorrhage [Unknown]
  - Myelosuppression [Unknown]
  - Febrile neutropenia [Unknown]
  - Pneumonia [Unknown]
  - Seizure [Unknown]
  - Staring [Unknown]
  - Peripheral coldness [Unknown]
  - Pupillary reflex impaired [Unknown]
  - Contusion [Unknown]
  - Petechiae [Unknown]
